FAERS Safety Report 9772656 (Version 2)
Quarter: 2013Q4

REPORT INFORMATION
  Report Type: Spontaneous
  Country: US (occurrence: US)
  Receive Date: 20131219
  Receipt Date: 20131219
  Transmission Date: 20140711
  Serious: No
  Sender: FDA-Public Use
  Company Number: US-GILEAD-2010-0026693

PATIENT
  Age: 38 Year
  Sex: Female
  Weight: 49.89 kg

DRUGS (1)
  1. CAYSTON [Suspect]

REACTIONS (4)
  - Drug hypersensitivity [Not Recovered/Not Resolved]
  - Oral discomfort [Not Recovered/Not Resolved]
  - Respiratory tract irritation [Not Recovered/Not Resolved]
  - Rash [Not Recovered/Not Resolved]
